FAERS Safety Report 6163617-2 (Version None)
Quarter: 2009Q2

REPORT INFORMATION
  Report Type: 
  Country: None (occurrence: None)
  Receive Date: 20090422
  Receipt Date: 20090416
  Transmission Date: 20091009
  Serious: Yes (Hospitalization)
  Sender: FDA-Public Use
  Company Number: CH-ROCHE-628003

PATIENT
  Age: 80 Year
  Sex: Female

DRUGS (10)
  1. ROCEPHIN [Suspect]
     Indication: BRONCHOPNEUMONIA
     Route: 042
     Dates: start: 20090303, end: 20090309
  2. CEFUROXIME [Suspect]
     Indication: BRONCHOPNEUMONIA
     Route: 048
     Dates: start: 20090309, end: 20090312
  3. KLACID [Suspect]
     Indication: BRONCHOPNEUMONIA
     Route: 065
  4. FOSAMAX [Concomitant]
     Dosage: DURATION OF USE: LONG TERM
     Route: 048
  5. CALCIMAGON D [Concomitant]
     Dosage: DURATION OF USE: LONGTERM
     Route: 048
  6. DIGOXIN STREULI [Concomitant]
     Route: 048
     Dates: start: 20090224
  7. NEXIUM [Concomitant]
     Indication: GASTRIC ULCER
     Route: 048
     Dates: start: 20070101
  8. DAFALGAN [Concomitant]
     Route: 048
  9. SUCRALFATE [Concomitant]
     Route: 048
     Dates: start: 20090311, end: 20090314
  10. SINTROM [Concomitant]
     Indication: ATRIAL FLUTTER
     Dosage: DURATION OF USE : LONG TERM
     Route: 048

REACTIONS (2)
  - PSEUDOMEMBRANOUS COLITIS [None]
  - SEPTIC SHOCK [None]
